FAERS Safety Report 10589585 (Version 1)
Quarter: 2014Q4

REPORT INFORMATION
  Report Type: Spontaneous
  Country: IN (occurrence: None)
  Receive Date: 20141114
  Receipt Date: 20141114
  Transmission Date: 20150529
  Serious: Yes (Other)
  Sender: FDA-Public Use
  Company Number: IN-003142

PATIENT
  Age: 20 Year

DRUGS (2)
  1. MILTEFOSINE (MILTEFOSINE) CAPSULE, 50MG [Suspect]
     Active Substance: MILTEFOSINE
     Indication: VISCERAL LEISHMANIASIS
  2. MILTEFOSINE (MILTEFOSINE) CAPSULE, 50MG [Suspect]
     Active Substance: MILTEFOSINE
     Indication: SKIN MASS

REACTIONS (4)
  - Necrosis [None]
  - Hypersensitivity [None]
  - Pigmentation disorder [None]
  - Cutaneous leishmaniasis [None]
